FAERS Safety Report 7403468-1 (Version None)
Quarter: 2011Q2

REPORT INFORMATION
  Report Type: 
  Country: None (occurrence: None)
  Receive Date: 20110408
  Receipt Date: 20110404
  Transmission Date: 20111010
  Serious: Yes (Hospitalization)
  Sender: FDA-Public Use
  Company Number: B0710321A

PATIENT
  Sex: Male

DRUGS (9)
  1. ARANESP [Concomitant]
  2. TAHOR [Concomitant]
  3. RIVOTRIL [Suspect]
     Indication: PRODUCT USED FOR UNKNOWN INDICATION
     Route: 048
     Dates: start: 20110129, end: 20110131
  4. FORLAX [Concomitant]
  5. CLINUTREN [Concomitant]
  6. ZELITREX [Suspect]
     Indication: HERPES ZOSTER
     Dosage: 1G THREE TIMES PER DAY
     Route: 048
     Dates: start: 20110128, end: 20110131
  7. KARDEGIC [Concomitant]
  8. EUPANTOL [Concomitant]
  9. CORDARONE [Concomitant]

REACTIONS (13)
  - INFLAMMATION [None]
  - CREATININE RENAL CLEARANCE DECREASED [None]
  - SPEECH DISORDER [None]
  - PYREXIA [None]
  - ENCEPHALOPATHY [None]
  - LEUKOCYTOSIS [None]
  - CONFUSIONAL STATE [None]
  - AGGRESSION [None]
  - RESPIRATORY DISORDER [None]
  - BLOOD CREATININE INCREASED [None]
  - DRUG LEVEL DECREASED [None]
  - PRODUCTIVE COUGH [None]
  - NEUROTOXICITY [None]
